FAERS Safety Report 24104507 (Version 1)
Quarter: 2024Q3

REPORT INFORMATION
  Report Type: Spontaneous
  Country: PL (occurrence: PL)
  Receive Date: 20240717
  Receipt Date: 20240717
  Transmission Date: 20241016
  Serious: Yes (Other)
  Sender: MYLAN
  Company Number: PL-MYLANLABS-2024M1065836

PATIENT
  Age: 38 Year
  Sex: Female

DRUGS (3)
  1. SERTRALINE [Suspect]
     Active Substance: SERTRALINE HYDROCHLORIDE
     Indication: Persistent depressive disorder
     Dosage: 100 MILLIGRAM, QD
     Route: 065
     Dates: start: 2019, end: 2019
  2. SERTRALINE [Suspect]
     Active Substance: SERTRALINE HYDROCHLORIDE
     Dosage: 150 MILLIGRAM, QD
     Route: 065
     Dates: start: 2019
  3. AMANTADINE [Concomitant]
     Active Substance: AMANTADINE
     Indication: Persistent depressive disorder
     Dosage: 100 MILLIGRAM, QD
     Route: 065
     Dates: start: 2019

REACTIONS (1)
  - Drug ineffective [Unknown]

NARRATIVE: CASE EVENT DATE: 20190101
